FAERS Safety Report 9071334 (Version 1)
Quarter: 2013Q1

REPORT INFORMATION
  Report Type: Spontaneous
  Country: US (occurrence: US)
  Receive Date: 20130206
  Receipt Date: 20130206
  Transmission Date: 20140127
  Serious: No
  Sender: FDA-Public Use
  Company Number: US-ALLERGAN-1210541US

PATIENT
  Age: 71 Year
  Sex: Female

DRUGS (4)
  1. RESTASIS? [Suspect]
     Indication: DRY EYE
     Dosage: 2 GTT, BID
     Route: 047
     Dates: start: 20120712, end: 20120728
  2. GENTEAL                            /00445101/ [Concomitant]
     Indication: DRY EYE
  3. GENTEAL                            /02056501/ [Concomitant]
     Indication: DRY EYE
  4. HYDROCODONE W/APAP [Concomitant]
     Indication: RHEUMATOID ARTHRITIS

REACTIONS (4)
  - Rhinalgia [Recovering/Resolving]
  - Facial pain [Recovering/Resolving]
  - Facial pain [Recovering/Resolving]
  - Eye pain [Recovering/Resolving]
